FAERS Safety Report 4869552-1 (Version None)
Quarter: 2005Q4

REPORT INFORMATION
  Report Type: 
  Country: None (occurrence: None)
  Receive Date: 20051227
  Receipt Date: 20051213
  Transmission Date: 20060501
  Serious: Yes (Hospitalization)
  Sender: FDA-Public Use
  Company Number: 213814

PATIENT
  Age: 67 Year
  Sex: Male

DRUGS (6)
  1. METALYSE                                    (TENECTEPLASE) [Suspect]
     Indication: ACUTE MYOCARDIAL INFARCTION
     Dosage: 8000 UNIT, INTRAVENOUS
     Route: 042
  2. ENOXAPARIN SODIUM [Suspect]
     Indication: MYOCARDIAL INFARCTION
     Dosage: 140 MG, SUBCUTANEOUS
     Route: 058
  3. HEPARIN [Suspect]
     Indication: MYOCARDIAL INFARCTION
     Dosage: 5000 IU, INTRAVENOUS
     Route: 042
  4. ASPIRIN [Suspect]
     Indication: MYOCARDIAL INFARCTION
     Dosage: 300 MG, ORAL
     Route: 048
  5. LOSARTAN (LOSARTAN POTASSIUM) [Concomitant]
  6. DOXAZOSIN MESYLATE [Concomitant]

REACTIONS (8)
  - ABDOMINAL PAIN UPPER [None]
  - CHEST PAIN [None]
  - DYSPHAGIA [None]
  - HAEMATEMESIS [None]
  - HAEMATOMA [None]
  - MEDIASTINAL HAEMATOMA [None]
  - ODYNOPHAGIA [None]
  - OESOPHAGEAL MASS [None]
